FAERS Safety Report 9523795 (Version 1)
Quarter: 2013Q3

REPORT INFORMATION
  Report Type: Spontaneous
  Country: US (occurrence: US)
  Receive Date: 20130916
  Receipt Date: 20130916
  Transmission Date: 20140515
  Serious: No
  Sender: FDA-Public Use
  Company Number: US-009507513-1309USA006234

PATIENT
  Sex: 0

DRUGS (1)
  1. ASMANEX TWISTHALER [Suspect]
     Dosage: TWO PUFFS  DAILY
     Route: 048
     Dates: start: 201106

REACTIONS (3)
  - Underdose [Unknown]
  - Product container issue [Unknown]
  - No adverse event [Unknown]
